FAERS Safety Report 4677400-8 (Version None)
Quarter: 2005Q2

REPORT INFORMATION
  Report Type: 
  Country: None (occurrence: None)
  Receive Date: 20050527
  Receipt Date: 20050527
  Transmission Date: 20051028
  Serious: Yes (Disabling)
  Sender: FDA-Public Use
  Company Number: None

PATIENT
  Age: 74 Year
  Sex: Male
  Weight: 83.9154 kg

DRUGS (5)
  1. LEVAQUIN [Suspect]
     Indication: BRONCHITIS ACUTE
     Dosage: 250 MG ONCE DAILY ORAL
     Route: 048
     Dates: start: 20050516, end: 20050521
  2. POST OP CATHETER ABLATION [Concomitant]
  3. COUMADIN [Concomitant]
  4. LOVENOX [Concomitant]
  5. SOTOLOL [Concomitant]

REACTIONS (1)
  - TENDON RUPTURE [None]
